FAERS Safety Report 8749339 (Version 2)
Quarter: 2012Q4

REPORT INFORMATION
  Report Type: Spontaneous
  Country: None (occurrence: None)
  Receive Date: 20120809
  Receipt Date: 20121024
  Transmission Date: 20130627
  Serious: Yes (Hospitalization, Other)
  Sender: FDA-Public Use
  Company Number: AUR-APL-2012-03370

PATIENT
  Age: 20 Year
  Sex: Male

DRUGS (1)
  1. RAMIPRIL [Suspect]
     Indication: HYPERTENSION
     Dosage: (5 mg, 1 in 1 D)
     Route: 048
     Dates: start: 20110605, end: 20110609

REACTIONS (1)
  - PRIAPISM [None]
